FAERS Safety Report 17374650 (Version 1)
Quarter: 2020Q1

REPORT INFORMATION
  Report Type: Spontaneous
  Country: US (occurrence: US)
  Receive Date: 20200206
  Receipt Date: 20200206
  Transmission Date: 20200409
  Serious: No
  Sender: FDA-Public Use
  Company Number: US-MACLEODS PHARMACEUTICALS US LTD-MAC2020025003

PATIENT

DRUGS (1)
  1. OSELTAMIVIR 75 MG CAPSULES [Suspect]
     Active Substance: OSELTAMIVIR
     Indication: INFLUENZA
     Dosage: UNK, GTIN: 10333342258660, SR NO.: H1AY9T9M855G, CODE NO.: HP/152/07
     Route: 065

REACTIONS (1)
  - Headache [Recovered/Resolved]
